FAERS Safety Report 16115047 (Version 1)
Quarter: 2019Q1

REPORT INFORMATION
  Report Type: Spontaneous
  Country: US (occurrence: US)
  Receive Date: 20190325
  Receipt Date: 20190325
  Transmission Date: 20190418
  Serious: No
  Sender: FDA-Public Use
  Company Number: US-SMITH AND NEPHEW, INC-2018SMT00148

PATIENT
  Sex: Female
  Weight: 56.69 kg

DRUGS (7)
  1. COLLAGENASE SANTYL [Suspect]
     Active Substance: COLLAGENASE CLOSTRIDIUM HISTOLYTICUM
     Indication: ULCER
     Dosage: ABOUT AN INCH, 1X/DAY
     Route: 061
     Dates: start: 201806
  2. VITAMIN D [Concomitant]
     Active Substance: CHOLECALCIFEROL
  3. LOVASTATIN. [Concomitant]
     Active Substance: LOVASTATIN
     Dosage: UNK
  4. COLLAGENASE SANTYL [Suspect]
     Active Substance: COLLAGENASE CLOSTRIDIUM HISTOLYTICUM
     Dosage: ABOUT AN INCH, MAY CHANGE MORE THAN ONCE DAILY IF THE AREA BECOMES WET
     Dates: start: 201806
  5. RAMIPRIL. [Concomitant]
     Active Substance: RAMIPRIL
  6. ALGINATE DRESSING (DEVICE) [Suspect]
     Active Substance: DEVICE
     Indication: ULCER
     Dosage: UNK
     Route: 061
     Dates: start: 201806, end: 2018
  7. ALTACE [Concomitant]
     Active Substance: RAMIPRIL

REACTIONS (4)
  - Flatulence [Not Recovered/Not Resolved]
  - Application site pain [Not Recovered/Not Resolved]
  - Expired product administered [Not Recovered/Not Resolved]
  - Abdominal pain upper [Not Recovered/Not Resolved]

NARRATIVE: CASE EVENT DATE: 2018
